FAERS Safety Report 8801691 (Version 1)
Quarter: 2012Q4

REPORT INFORMATION
  Report Type: 
  Country: HR (occurrence: HR)
  Receive Date: 20120921
  Receipt Date: 20120921
  Transmission Date: 20130627
  Serious: Yes (Other)
  Sender: FDA-Public Use
  Company Number: HR-ELI_LILLY_AND_COMPANY-HR201206009735

PATIENT
  Age: 84 Year
  Sex: Female

DRUGS (6)
  1. FORTEO [Suspect]
     Indication: OSTEOPOROSIS
     Dosage: 20 ug, qd
     Route: 058
     Dates: start: 201203, end: 20120628
  2. FORTEO [Suspect]
     Dosage: 20 ug, qd
     Route: 058
  3. MARIVARIN [Concomitant]
     Dosage: UNK
  4. CINCOR [Concomitant]
     Dosage: UNK
  5. CALCIUM CITRATE [Concomitant]
     Dosage: UNK
  6. VITAMIN D NOS [Concomitant]
     Dosage: UNK

REACTIONS (8)
  - Breast neoplasm [Unknown]
  - Bone pain [Recovered/Resolved]
  - Ear pain [Recovered/Resolved]
  - C-reactive protein increased [Recovered/Resolved]
  - Red blood cell sedimentation rate increased [Recovered/Resolved]
  - Blood fibrinogen increased [Recovered/Resolved]
  - Inflammation [Recovered/Resolved]
  - Pain [Recovered/Resolved]
